FAERS Safety Report 6387416-1 (Version None)
Quarter: 2009Q3

REPORT INFORMATION
  Report Type: 
  Country: None (occurrence: None)
  Receive Date: 20090930
  Receipt Date: 20090914
  Transmission Date: 20100115
  Serious: Yes (Hospitalization)
  Sender: FDA-Public Use
  Company Number: 2009AL004878

PATIENT
  Sex: Female

DRUGS (60)
  1. DIGOXIN [Suspect]
     Dosage: 0.25 MG. DAILY PO
     Route: 048
     Dates: start: 20020120
  2. DIGOXIN [Suspect]
     Dosage: 0.125 MG
     Dates: start: 20061101
  3. LIDODERM [Concomitant]
  4. AZITHROMYCIN [Concomitant]
  5. LIDOCAINE [Concomitant]
  6. PROMETHAZINE [Concomitant]
  7. PROTONIX [Concomitant]
  8. LISINOPRIL [Concomitant]
  9. FUROSEMIDE [Concomitant]
  10. KLOR-CON [Concomitant]
  11. HYDROMORPHON [Concomitant]
  12. REQUIP [Concomitant]
  13. SPIRONOLACTIN [Concomitant]
  14. BENZONATATE [Concomitant]
  15. LORAZEPAM [Concomitant]
  16. AMBIEN [Concomitant]
  17. COREG [Concomitant]
  18. AVINZA [Concomitant]
  19. CYMBALTA [Concomitant]
  20. MORPHINE SULFATE [Concomitant]
  21. CLARITIN [Concomitant]
  22. STADOL [Concomitant]
  23. AMRIX [Concomitant]
  24. CLIMARA [Concomitant]
  25. VIVELLE-DOT [Concomitant]
  26. AMOXICILLIN [Concomitant]
  27. RONDEC-DM [Concomitant]
  28. POTASSIUM CHLORIDE 20MEQ [Concomitant]
  29. TRICOR [Concomitant]
  30. ............... [Concomitant]
  31. CYMBALTA [Concomitant]
  32. CEPHALEXIN [Concomitant]
  33. NEOMYCIN/POLYMYCIN/HYDROCORTISONE (% ) [Concomitant]
  34. ................... [Concomitant]
  35. MYTUSSIN (100-10) [Concomitant]
  36. PHENADOZ (25MG) [Concomitant]
  37. PROMETHEGAN (25MG) [Concomitant]
  38. FENTANYL [Concomitant]
  39. PROAIR HFA [Concomitant]
  40. BUTALBITAL ACETAMINOPHEN AND CAFFEINE [Concomitant]
  41. HYDROXYZINE HYDROCHLORIDE(25MG) [Concomitant]
  42. FLUOCINONIDE [Concomitant]
  43. ZOLPIDEM [Concomitant]
  44. PERMETHRIN(5%) [Concomitant]
  45. TRIAMCINOLON (0.1%) [Concomitant]
  46. FLUTICASONE (50MCG) [Concomitant]
  47. CARVEDILOL [Concomitant]
  48. PREVACID [Concomitant]
  49. TRIAZOLAM  (0.25MG) [Concomitant]
  50. ............ [Concomitant]
  51. ................... [Concomitant]
  52. ESTRADIOL [Concomitant]
  53. DEMEROL [Concomitant]
  54. NITROGLYCERIN [Concomitant]
  55. FLONASE [Concomitant]
  56. COMBIVENT [Concomitant]
  57. ALDACTONE [Concomitant]
  58. TRICOR [Concomitant]
  59. OXYCODONE [Concomitant]
  60. TEMAZEPAM [Concomitant]

REACTIONS (34)
  - ABDOMINAL ADHESIONS [None]
  - ABDOMINAL PAIN UPPER [None]
  - ADNEXA UTERI MASS [None]
  - ANGINA PECTORIS [None]
  - AORTIC VALVE INCOMPETENCE [None]
  - ARTERIOSCLEROSIS CORONARY ARTERY [None]
  - ASTHMA [None]
  - BUNDLE BRANCH BLOCK [None]
  - CARDIOMYOPATHY [None]
  - CHEST DISCOMFORT [None]
  - COSTOCHONDRITIS [None]
  - DYSPAREUNIA [None]
  - DYSPNOEA [None]
  - EPIGASTRIC DISCOMFORT [None]
  - FIBROMYALGIA [None]
  - GASTROOESOPHAGEAL REFLUX DISEASE [None]
  - HEADACHE [None]
  - HYPERTRIGLYCERIDAEMIA [None]
  - INTESTINAL OBSTRUCTION [None]
  - MITRAL VALVE INCOMPETENCE [None]
  - MOOD DISORDER DUE TO A GENERAL MEDICAL CONDITION [None]
  - MULTIPLE INJURIES [None]
  - NON-CARDIAC CHEST PAIN [None]
  - OBESITY [None]
  - OVARIAN ADHESION [None]
  - PAIN [None]
  - PALPITATIONS [None]
  - PELVIC ADHESIONS [None]
  - PELVIC PAIN [None]
  - POLYCYSTIC OVARIES [None]
  - PROCEDURAL PAIN [None]
  - SALPINGITIS [None]
  - TRICUSPID VALVE INCOMPETENCE [None]
  - VENTRICULAR HYPOKINESIA [None]
